FAERS Safety Report 14843538 (Version 1)
Quarter: 2018Q2

REPORT INFORMATION
  Report Type: Spontaneous
  Country: FR (occurrence: FR)
  Receive Date: 20180503
  Receipt Date: 20180503
  Transmission Date: 20180711
  Serious: Yes (Hospitalization)
  Sender: FDA-Public Use
  Company Number: FR-009507513-1804FRA011976

PATIENT
  Age: 62 Year
  Sex: Male
  Weight: 52 kg

DRUGS (2)
  1. CIFLOX (CIPROFLOXACIN HYDROCHLORIDE) [Suspect]
     Active Substance: CIPROFLOXACIN HYDROCHLORIDE
     Indication: CHOLANGITIS
     Dosage: 1000 MG, QD
     Route: 048
     Dates: start: 20180307, end: 20180329
  2. INVANZ [Suspect]
     Active Substance: ERTAPENEM SODIUM
     Indication: CHOLANGITIS
     Route: 058
     Dates: start: 20180307, end: 20180329

REACTIONS (2)
  - Gait disturbance [Recovered/Resolved]
  - Confusional state [Recovered/Resolved]

NARRATIVE: CASE EVENT DATE: 20180327
